FAERS Safety Report 8465707-8 (Version None)
Quarter: 2012Q2

REPORT INFORMATION
  Report Type: 
  Country: None (occurrence: None)
  Receive Date: 20120626
  Receipt Date: 20120612
  Transmission Date: 20120825
  Serious: Yes (Hospitalization, Other)
  Sender: FDA-Public Use
  Company Number: JP-PFIZER INC-2012150807

PATIENT
  Sex: Female

DRUGS (8)
  1. PREDNISONE TAB [Suspect]
     Indication: SYSTEMIC LUPUS ERYTHEMATOSUS
     Dosage: 30 MG, DAILY
     Route: 064
  2. CANDESARTAN CILEXETIL [Suspect]
     Indication: HYPERTENSION
     Dosage: 4 MG, DAILY
     Route: 064
  3. PREDNISOLONE TAB [Suspect]
     Indication: LUPUS NEPHRITIS
  4. ATENOLOL [Suspect]
     Indication: HYPERTENSION
     Dosage: 25 MG,DAILY
     Route: 064
  5. AMLODIPINE BESYLATE [Suspect]
     Indication: HYPERTENSION
     Dosage: 5 MG, DAILY
     Route: 064
  6. NIFEDIPINE [Suspect]
     Indication: HYPERTENSION
     Dosage: UNK
     Route: 064
  7. HYDRALAZINE HCL [Suspect]
     Dosage: 70 MG, DAILY
     Route: 064
  8. HYDRALAZINE HCL [Suspect]
     Dosage: 30 MG, DAILY
     Route: 064

REACTIONS (5)
  - LOW BIRTH WEIGHT BABY [None]
  - MATERNAL EXPOSURE TIMING UNSPECIFIED [None]
  - FOETAL GROWTH RESTRICTION [None]
  - NEONATAL RESPIRATORY DISTRESS SYNDROME [None]
  - PREMATURE BABY [None]
